FAERS Safety Report 20113266 (Version 1)
Quarter: 2021Q4

REPORT INFORMATION
  Report Type: Spontaneous
  Country: CN (occurrence: None)
  Receive Date: 20211125
  Receipt Date: 20211125
  Transmission Date: 20220303
  Serious: Yes (Hospitalization)
  Sender: FDA-Public Use
  Company Number: 2021A802415

PATIENT
  Age: 55 Year
  Sex: Male
  Weight: 105 kg

DRUGS (4)
  1. IMFINZI [Suspect]
     Active Substance: DURVALUMAB
     Indication: Small cell lung cancer
     Dosage: 1500.0MG EVERY CYCLE
     Route: 042
     Dates: start: 20211015
  2. ETOPOSIDE [Concomitant]
     Active Substance: ETOPOSIDE
  3. CARBOPLATIN [Concomitant]
     Active Substance: CARBOPLATIN
  4. CISPLATIN [Concomitant]
     Active Substance: CISPLATIN

REACTIONS (1)
  - White blood cell count decreased [Recovering/Resolving]

NARRATIVE: CASE EVENT DATE: 20211104
